FAERS Safety Report 25587526 (Version 1)
Quarter: 2025Q3

REPORT INFORMATION
  Report Type: Report from Study
  Country: CA (occurrence: CA)
  Receive Date: 20250721
  Receipt Date: 20250721
  Transmission Date: 20251020
  Serious: Yes (Other)
  Sender: ABBVIE
  Company Number: CA-ABBVIE-6377376

PATIENT
  Age: 79 Year
  Sex: Female

DRUGS (1)
  1. HUMIRA [Suspect]
     Active Substance: ADALIMUMAB
     Indication: Crohn^s disease
     Dosage: INJECT 80 MG (2 PENS)
     Route: 058
     Dates: start: 20240402

REACTIONS (2)
  - Transfusion [Unknown]
  - Illness [Unknown]

NARRATIVE: CASE EVENT DATE: 20250712
